FAERS Safety Report 5878932-7 (Version None)
Quarter: 2008Q3

REPORT INFORMATION
  Report Type: 
  Country: None (occurrence: None)
  Receive Date: 20080910
  Receipt Date: 20080902
  Transmission Date: 20090109
  Serious: Yes (Hospitalization)
  Sender: FDA-Public Use
  Company Number: ABJGI-08-0332

PATIENT
  Age: 61 Year
  Sex: Male

DRUGS (3)
  1. ABRAXANE [Suspect]
     Indication: METASTATIC GASTRIC CANCER
     Dosage: 260 MG/M2
     Dates: start: 20080811
  2. LOXOPROFEN (LOXOPROFEN) [Concomitant]
  3. OXINORM (ORGOTEIN) [Concomitant]

REACTIONS (2)
  - GASTROINTESTINAL HAEMORRHAGE [None]
  - HAEMOGLOBIN DECREASED [None]
